FAERS Safety Report 4279157-1 (Version None)
Quarter: 2004Q1

REPORT INFORMATION
  Report Type: 
  Country: None (occurrence: None)
  Receive Date: 20040122
  Receipt Date: 20040112
  Transmission Date: 20041129
  Serious: Yes (Hospitalization)
  Sender: FDA-Public Use
  Company Number: PERI00204000113

PATIENT
  Age: 48 Year
  Sex: Female
  Weight: 84 kg

DRUGS (7)
  1. COVERSYL (PERINDOPRIL) [Suspect]
     Indication: HYPERTENSION
     Dosage: 8 MG QD PO
     Route: 048
     Dates: end: 20031222
  2. FUROSEMIDE [Suspect]
     Indication: OEDEMA
     Dosage: 40 MG BID PO
     Route: 048
     Dates: start: 20031001
  3. ALENDRONATE SODIUM [Concomitant]
  4. RANITIDINE [Concomitant]
  5. ATENOLOL [Concomitant]
  6. TACROLIMUS [Concomitant]
  7. PREDNISOLONE [Concomitant]

REACTIONS (2)
  - DIABETIC HYPEROSMOLAR COMA [None]
  - PANCREATITIS [None]
